FAERS Safety Report 12818748 (Version 1)
Quarter: 2016Q4

REPORT INFORMATION
  Report Type: Spontaneous
  Country: US (occurrence: US)
  Receive Date: 20161006
  Receipt Date: 20161006
  Transmission Date: 20170207
  Serious: Yes (Disabling)
  Sender: FDA-Public Use
  Company Number: None

PATIENT
  Age: 61 Year
  Sex: Female
  Weight: 84.15 kg

DRUGS (9)
  1. VITAMIN D [Concomitant]
     Active Substance: CHOLECALCIFEROL
  2. NAC [Concomitant]
  3. MAGNESIUM CHLORIDE. [Concomitant]
     Active Substance: MAGNESIUM CHLORIDE
  4. LEVAQUIN [Suspect]
     Active Substance: LEVOFLOXACIN
     Indication: PNEUMONIA
     Route: 048
     Dates: start: 20160902, end: 20160906
  5. ZITHROMAX [Concomitant]
     Active Substance: AZITHROMYCIN DIHYDRATE
  6. COQ10 [Concomitant]
     Active Substance: UBIDECARENONE
  7. METHYLCOBALAMIN B12 [Concomitant]
  8. PQQ [Concomitant]
  9. AMITRYPTALINE [Concomitant]
     Active Substance: AMITRIPTYLINE

REACTIONS (12)
  - Myalgia [None]
  - Musculoskeletal stiffness [None]
  - Pain [None]
  - Dizziness [None]
  - Fatigue [None]
  - Malaise [None]
  - Paraesthesia [None]
  - Burning sensation [None]
  - Impaired work ability [None]
  - Peripheral swelling [None]
  - Anxiety [None]
  - Muscular weakness [None]

NARRATIVE: CASE EVENT DATE: 20160902
